FAERS Safety Report 14636156 (Version 1)
Quarter: 2018Q1

REPORT INFORMATION
  Report Type: Not Available
  Country: US (occurrence: US)
  Receive Date: 20180314
  Receipt Date: 20180314
  Transmission Date: 20180509
  Serious: No
  Sender: FDA-Public Use
  Company Number: US-FOUNDATIONCONSUMERHC-2018-US-000903

PATIENT
  Age: 30 Year
  Sex: Female
  Weight: 67.59 kg

DRUGS (3)
  1. PLAN B ONE-STEP [Suspect]
     Active Substance: LEVONORGESTREL
     Dosage: 1 TAB PO
     Route: 048
     Dates: start: 20180113, end: 20180113
  2. ^SKIN, HAIR AND NAILS^ [Concomitant]
  3. UNSPECIFIED INHALER [Concomitant]
     Active Substance: UNSPECIFIED INGREDIENT
     Dosage: ^USES INHALER THREE TIMES PER WEEK^

REACTIONS (4)
  - Headache [Unknown]
  - Abdominal pain upper [Unknown]
  - Fatigue [Unknown]
  - Vaginal haemorrhage [Unknown]

NARRATIVE: CASE EVENT DATE: 20180113
